FAERS Safety Report 8997319 (Version 3)
Quarter: 2013Q2

REPORT INFORMATION
  Report Type: Spontaneous
  Country: US (occurrence: US)
  Receive Date: 20130104
  Receipt Date: 20130520
  Transmission Date: 20140414
  Serious: Yes (Hospitalization, Other)
  Sender: FDA-Public Use
  Company Number: US-009507513-1301USA000323

PATIENT
  Sex: Female
  Weight: 68.27 kg

DRUGS (1)
  1. NUVARING [Suspect]
     Indication: CONTRACEPTION
     Dosage: 1 DF, UNK
     Route: 067
     Dates: start: 20080109, end: 20100120

REACTIONS (9)
  - Pulmonary embolism [Unknown]
  - Deep vein thrombosis [Unknown]
  - Post thrombotic syndrome [Unknown]
  - Varicose vein [Unknown]
  - Cervical dysplasia [Unknown]
  - Low density lipoprotein increased [Unknown]
  - Withdrawal syndrome [Recovered/Resolved]
  - Weight increased [Recovered/Resolved]
  - Irritability [Unknown]
